FAERS Safety Report 11157663 (Version 1)
Quarter: 2015Q2

REPORT INFORMATION
  Report Type: Spontaneous
  Country: US (occurrence: None)
  Receive Date: 20150601
  Receipt Date: 20150601
  Transmission Date: 20150821
  Serious: Yes (Hospitalization)
  Sender: FDA-Public Use
  Company Number: None

PATIENT
  Age: 2 Year
  Sex: Male
  Weight: 13.8 kg

DRUGS (1)
  1. THIOGUANINE (6-TG) [Suspect]
     Active Substance: THIOGUANINE
     Dosage: 480 TOTAL DOSE ADMINISTERED
     Dates: end: 20150522

REACTIONS (6)
  - Ascites [None]
  - Venoocclusive liver disease [None]
  - Therapeutic response decreased [None]
  - Liver disorder [None]
  - Blood bilirubin increased [None]
  - Platelet count decreased [None]

NARRATIVE: CASE EVENT DATE: 20150522
